FAERS Safety Report 8625172-4 (Version None)
Quarter: 2012Q3

REPORT INFORMATION
  Report Type: 
  Country: None (occurrence: None)
  Receive Date: 20120827
  Receipt Date: 20120821
  Transmission Date: 20120928
  Serious: Yes (Hospitalization)
  Sender: FDA-Public Use
  Company Number: PHHO2012JP005426

PATIENT
  Sex: Female
  Weight: 51 kg

DRUGS (25)
  1. LASIX [Concomitant]
     Indication: OEDEMA PERIPHERAL
     Dosage: 20 MG, UNK
     Route: 048
     Dates: start: 20030811
  2. MS CONTIN [Concomitant]
     Indication: CANCER PAIN
     Dosage: 20 MG, UNK
     Route: 048
     Dates: start: 20091214
  3. ACETAMINOPHEN [Concomitant]
     Indication: HERPES ZOSTER
     Dosage: 1600 MG, UNK
     Dates: start: 20120402
  4. MERISLON [Concomitant]
     Indication: DIZZINESS
     Dosage: 18 MG, UNK
     Route: 048
     Dates: start: 20120528
  5. INC424 [Suspect]
     Indication: MYELOFIBROSIS
     Dosage: 30 MG, BID
     Route: 048
     Dates: start: 20111212, end: 20120331
  6. INC424 [Suspect]
     Dosage: UNK
     Route: 048
     Dates: start: 20120402, end: 20120409
  7. LANSOPRAZOLE [Concomitant]
     Indication: PROPHYLAXIS AGAINST GASTROINTESTINAL ULCER
     Dosage: 30 MG, UNK
     Dates: start: 20081014
  8. EXJADE [Concomitant]
     Indication: HAEMOCHROMATOSIS
     Dosage: 125 MG, UNK
     Route: 048
     Dates: start: 20100524, end: 20120521
  9. PURSENNID [Concomitant]
     Indication: CONSTIPATION
     Dosage: 24 MG, UNK
     Dates: start: 20120424
  10. TERRANAS [Concomitant]
     Indication: HEADACHE
     Dosage: 10 MG, UNK
     Route: 048
     Dates: start: 20120604
  11. AMOBAN [Concomitant]
     Indication: INSOMNIA
     Dosage: 7.5 MG, UNK
     Route: 048
     Dates: start: 20120424
  12. ACETAMINOPHEN [Concomitant]
     Dosage: 1200 MG
  13. MAXALT [Concomitant]
     Indication: HEADACHE
     Dosage: UNK
     Dates: start: 20120604
  14. ALOSENN [Concomitant]
     Indication: CONSTIPATION
     Dosage: UNK
     Route: 048
     Dates: start: 20040523
  15. LAXOBERON [Concomitant]
     Indication: CONSTIPATION
     Dosage: UNK
     Route: 048
     Dates: start: 20120521
  16. INC424 [Suspect]
     Dosage: 20 MG, QD
     Dates: start: 20120525, end: 20120818
  17. CELECOXIB [Concomitant]
     Indication: ARTHRALGIA
     Dosage: 200 MG, UNK
     Route: 048
     Dates: start: 20120402, end: 20120409
  18. LYRICA [Concomitant]
     Indication: CANCER PAIN
     Dosage: 300 MG, UNK
     Route: 048
     Dates: start: 20120424
  19. EXJADE [Concomitant]
     Dosage: 125 MG, UNK
     Route: 048
  20. MORPHINE [Concomitant]
     Indication: CANCER PAIN
     Dosage: UNK
     Route: 048
     Dates: start: 20091214
  21. HALCION [Concomitant]
     Indication: INSOMNIA
     Dosage: 0.25 MG, UNK
     Route: 048
     Dates: start: 20041207
  22. MAGNESIUM OXIDE [Concomitant]
     Indication: CONSTIPATION
     Dosage: 2000 MG, UNK
     Route: 048
     Dates: start: 20080715
  23. VITAMIN B12 [Concomitant]
     Indication: NEUROPATHY PERIPHERAL
     Dosage: 1500 MG, UNK
     Route: 048
     Dates: start: 20120402
  24. PREDNISOLONE [Suspect]
     Indication: PLATELET COUNT DECREASED
     Dosage: 10 MG, QD
     Route: 048
     Dates: start: 20040518
  25. ULORIC [Concomitant]
     Indication: HYPERURICAEMIA
     Dosage: 20 MG, UNK
     Route: 048
     Dates: start: 20120523

REACTIONS (5)
  - CHOLECYSTITIS ACUTE [None]
  - HERPES ZOSTER [None]
  - PNEUMONIA [None]
  - ENTEROCOLITIS [None]
  - PYREXIA [None]
